FAERS Safety Report 25747617 (Version 1)
Quarter: 2025Q3

REPORT INFORMATION
  Report Type: Spontaneous
  Country: EU (occurrence: JP)
  Receive Date: 20250901
  Receipt Date: 20250901
  Transmission Date: 20251020
  Serious: Yes (Hospitalization, Other)
  Sender: SLATE RUN
  Company Number: EU-SLATERUN-2025SRLIT00155

PATIENT
  Age: 74 Year
  Sex: Male

DRUGS (8)
  1. METOPROLOL [Suspect]
     Active Substance: METOPROLOL
     Indication: Hypertension
     Route: 065
  2. METFORMIN HYDROCHLORIDE [Suspect]
     Active Substance: METFORMIN HYDROCHLORIDE
     Indication: Type 2 diabetes mellitus
     Route: 065
  3. HYDROCHLOROTHIAZIDE\LOSARTAN POTASSIUM [Suspect]
     Active Substance: HYDROCHLOROTHIAZIDE\LOSARTAN POTASSIUM
     Indication: Hypertension
     Dosage: 50MG/12.5MG
     Route: 065
  4. NIFEDIPINE [Suspect]
     Active Substance: NIFEDIPINE
     Indication: Hypertension
     Dosage: TWICE DAILY ONCE IN THE MORNING AND ONCE IN THE EVENING
     Route: 065
  5. MOXONIDINE [Concomitant]
     Active Substance: MOXONIDINE
     Indication: Hypertension
     Dosage: FOR OVER 5 YEARS
     Route: 065
  6. GLIMEPIRIDE [Concomitant]
     Active Substance: GLIMEPIRIDE
     Indication: Type 2 diabetes mellitus
     Route: 065
  7. PENTOXIFYLLINE [Concomitant]
     Active Substance: PENTOXIFYLLINE
     Indication: Product used for unknown indication
     Route: 065
  8. THIOCTIC ACID [Concomitant]
     Active Substance: THIOCTIC ACID
     Indication: Product used for unknown indication
     Route: 065

REACTIONS (3)
  - Squamous cell carcinoma [Unknown]
  - Basal cell carcinoma [Unknown]
  - Product contamination [Unknown]
